FAERS Safety Report 7763291-5 (Version None)
Quarter: 2011Q3

REPORT INFORMATION
  Report Type: 
  Country: None (occurrence: None)
  Receive Date: 20110920
  Receipt Date: 20101103
  Transmission Date: 20111222
  Serious: No
  Sender: FDA-Public Use
  Company Number: US-BAYER-201023489BCC

PATIENT
  Age: 3 Year
  Sex: Male
  Weight: 14.059 kg

DRUGS (1)
  1. ASPIRIN [Suspect]
     Indication: PAIN
     Dosage: COUNT BOTTLE 36S
     Route: 048
     Dates: start: 20101103, end: 20101103

REACTIONS (1)
  - NO ADVERSE EVENT [None]
